FAERS Safety Report 8930226 (Version 1)
Quarter: 2012Q4

REPORT INFORMATION
  Report Type: 
  Country: AT (occurrence: AT)
  Receive Date: 20121128
  Receipt Date: 20121128
  Transmission Date: 20130627
  Serious: Yes (Hospitalization)
  Sender: FDA-Public Use
  Company Number: AT-VERTEX PHARMACEUTICAL INC.-2012-025230

PATIENT
  Age: 45 Year
  Sex: Female

DRUGS (9)
  1. INCIVO [Suspect]
     Indication: CHRONIC HEPATITIS C
     Dosage: UNK UNK, qd
     Route: 048
     Dates: start: 20120829
  2. PEGASYS [Suspect]
     Indication: CHRONIC HEPATITIS C
     Dosage: UNK, qw
     Route: 058
     Dates: start: 20120829
  3. RIBAVIRIN [Suspect]
     Indication: CHRONIC HEPATITIS C
     Dosage: UNK, qd
     Route: 048
     Dates: start: 20120829
  4. CLEMIZOLE HYDROCHLORIDE [Concomitant]
     Dates: start: 20120912
  5. ALPRAZOLAM [Concomitant]
     Dates: start: 20120925
  6. BETAMETHASONE VALERATE [Concomitant]
     Dosage: UNK
     Dates: start: 20120925
  7. ADVANTAN [Concomitant]
     Route: 061
     Dates: start: 20120925
  8. RISPERDAL [Concomitant]
     Dates: start: 20120925
  9. ALL OTHER THERAPEUTIC PRODUCT [Concomitant]
     Dosage: UNK

REACTIONS (4)
  - Syncope [Unknown]
  - General physical health deterioration [Unknown]
  - Respiratory rate increased [Unknown]
  - Haemoglobin decreased [Unknown]
